FAERS Safety Report 17861995 (Version 1)
Quarter: 2020Q2

REPORT INFORMATION
  Report Type: Spontaneous
  Country: FR (occurrence: FR)
  Receive Date: 20200604
  Receipt Date: 20200604
  Transmission Date: 20200714
  Serious: Yes (Life-Threatening)
  Sender: FDA-Public Use
  Company Number: FR-MYLANLABS-2020M1054047

PATIENT
  Age: 70 Year
  Sex: Female
  Weight: 66 kg

DRUGS (3)
  1. ARAVA [Suspect]
     Active Substance: LEFLUNOMIDE
     Indication: PSORIATIC ARTHROPATHY
     Dosage: UNK
     Route: 048
     Dates: start: 201901, end: 201908
  2. OTEZLA [Suspect]
     Active Substance: APREMILAST
     Indication: PSORIATIC ARTHROPATHY
     Dosage: 60 MILLIGRAM, QD
     Route: 048
     Dates: start: 201908, end: 202002
  3. METHOTREXATE. [Suspect]
     Active Substance: METHOTREXATE
     Indication: PSORIATIC ARTHROPATHY
     Dosage: 17.5 MILLIGRAM, QW
     Route: 058
     Dates: start: 1995, end: 201901

REACTIONS (1)
  - Anaplastic thyroid cancer [Not Recovered/Not Resolved]

NARRATIVE: CASE EVENT DATE: 201911
